FAERS Safety Report 24383117 (Version 1)
Quarter: 2024Q4

REPORT INFORMATION
  Report Type: Spontaneous
  Country: US (occurrence: US)
  Receive Date: 20241001
  Receipt Date: 20241001
  Transmission Date: 20250115
  Serious: No
  Sender: CATALYST PHARMA
  Company Number: US-CATALYST PHARMACEUTICALS-US-CATA-24-00374

PATIENT
  Age: 11 Year
  Sex: Male
  Weight: 28.8 kg

DRUGS (4)
  1. AGAMREE [Suspect]
     Active Substance: VAMOROLONE
     Indication: Duchenne muscular dystrophy
     Dosage: 4 ML
     Route: 048
     Dates: start: 20240427, end: 20240427
  2. AGAMREE [Suspect]
     Active Substance: VAMOROLONE
     Dosage: 4.3 ML ONCE DAILY
     Route: 048
     Dates: start: 20240428
  3. BACLOFEN [Concomitant]
     Active Substance: BACLOFEN
     Indication: Pain
     Dosage: 5 MG/ 5 ML AS NEEDED
     Route: 048
  4. BACLOFEN [Concomitant]
     Active Substance: BACLOFEN
     Indication: Muscle spasms

REACTIONS (1)
  - Underdose [Unknown]

NARRATIVE: CASE EVENT DATE: 20240427
